FAERS Safety Report 25931354 (Version 1)
Quarter: 2025Q4

REPORT INFORMATION
  Report Type: Spontaneous
  Country: CO (occurrence: CO)
  Receive Date: 20251016
  Receipt Date: 20251016
  Transmission Date: 20260118
  Serious: Yes (Other)
  Sender: SANDOZ
  Company Number: CO-002147023-NVSC2025CO152771

PATIENT
  Age: 50 Year
  Sex: Female

DRUGS (7)
  1. ATORVASTATIN [Suspect]
     Active Substance: ATORVASTATIN
     Indication: Product used for unknown indication
     Dosage: 20 MG, QD (16 YEARS AGO)
     Route: 048
  2. MYCOPHENOLATE SODIUM [Suspect]
     Active Substance: MYCOPHENOLATE SODIUM
     Indication: Heart transplant
     Dosage: 360 MG (EVERY 12 HOURS,4 YEARSAGO)
     Route: 048
  3. TACROLIMUS [Suspect]
     Active Substance: TACROLIMUS
     Indication: Heart transplant
     Dosage: 4 MG, QD (4 X 1MG, 10 YEARS AGO)
     Route: 048
  4. CALCITRIOL [Concomitant]
     Active Substance: CALCITRIOL
     Indication: Bone disorder
     Dosage: 0.25 MG, QD (16 YEARS AGO)
     Route: 048
  5. CALCIUM CARBONATE [Concomitant]
     Active Substance: CALCIUM CARBONATE
     Indication: Bone disorder
     Dosage: UNK, QD (NOT RECALLED, 16 YEARS AGO)
     Route: 048
  6. LEVOTHYROXINE [Concomitant]
     Active Substance: LEVOTHYROXINE
     Indication: Hypothyroidism
     Dosage: 50 MG, QD (30 YEARS AGO)
     Route: 048
  7. WARFARIN [Concomitant]
     Active Substance: WARFARIN
     Indication: Lung disorder
     Dosage: 5 MG, QD (6 YEARS AGO)
     Route: 048

REACTIONS (4)
  - Hemiparesis [Unknown]
  - Hypertension [Unknown]
  - Thyroid disorder [Unknown]
  - Anxiety [Unknown]
